FAERS Safety Report 9625083 (Version 1)
Quarter: 2013Q4

REPORT INFORMATION
  Report Type: Spontaneous
  Country: US (occurrence: None)
  Receive Date: 20131015
  Receipt Date: 20131015
  Transmission Date: 20140711
  Serious: Yes (Death)
  Sender: FDA-Public Use
  Company Number: None

PATIENT
  Age: 52 Year
  Sex: Male
  Weight: 79.38 kg

DRUGS (1)
  1. EMSAM [Suspect]
     Indication: DEPRESSION
     Dates: start: 20131003, end: 20131008

REACTIONS (4)
  - Depression [None]
  - Abnormal behaviour [None]
  - Completed suicide [None]
  - Asphyxia [None]
